FAERS Safety Report 6305661-8 (Version None)
Quarter: 2009Q3

REPORT INFORMATION
  Report Type: 
  Country: None (occurrence: None)
  Receive Date: 20090807
  Receipt Date: 20090722
  Transmission Date: 20100115
  Serious: Yes (Other)
  Sender: FDA-Public Use
  Company Number: 2009S1009015

PATIENT
  Age: 30 Year
  Sex: Female
  Weight: 65.7716 kg

DRUGS (4)
  1. AMNESTEEM [Suspect]
     Dosage: 40 MG; EVERY OTHER DAY; ORAL; 80 MG; EVERY OTHER DAY, ORAL; 40 MG; TWICE A DAY; ORAL
     Route: 048
     Dates: start: 20080924, end: 20090301
  2. AMNESTEEM [Suspect]
     Dosage: 40 MG; EVERY OTHER DAY; ORAL; 80 MG; EVERY OTHER DAY, ORAL; 40 MG; TWICE A DAY; ORAL
     Route: 048
     Dates: start: 20080924, end: 20090301
  3. AMNESTEEM [Suspect]
     Dosage: 40 MG; EVERY OTHER DAY; ORAL; 80 MG; EVERY OTHER DAY, ORAL; 40 MG; TWICE A DAY; ORAL
     Route: 048
     Dates: end: 20090413
  4. ORAL CONTRACEPTIVE NOS [Concomitant]

REACTIONS (3)
  - DRUG EXPOSURE DURING PREGNANCY [None]
  - LIP DRY [None]
  - PREGNANCY [None]
